FAERS Safety Report 7817615-0 (Version None)
Quarter: 2011Q4

REPORT INFORMATION
  Report Type: 
  Country: None (occurrence: None)
  Receive Date: 20111017
  Receipt Date: 20111012
  Transmission Date: 20120403
  Serious: Yes (Life-Threatening, Hospitalization, Other)
  Sender: FDA-Public Use
  Company Number: PHHY2011US60392

PATIENT
  Sex: Female

DRUGS (9)
  1. AMITRIPTYLINE HCL [Concomitant]
     Dosage: 25 MG, QD
     Route: 048
     Dates: start: 20110707
  2. CIPRODEX OTIC [Concomitant]
     Dosage: UNK UKN, OT
  3. LEVOTHYROXINE SODIUM [Concomitant]
     Dosage: 125 UG, QD
     Route: 048
  4. MORPHINE SULFATE [Concomitant]
     Indication: PAIN
     Dosage: 2 DF, BID
     Route: 048
     Dates: start: 20080123
  5. GABAPENTIN [Concomitant]
     Indication: PAIN
     Dosage: 400 MG, TID
     Route: 048
     Dates: start: 20091119
  6. MIDODRINE HYDROCHLORIDE [Concomitant]
     Dosage: 5 MG, TID
     Dates: start: 20110707
  7. SOMA [Concomitant]
     Dosage: 350 MG, UNK
     Route: 048
  8. GILENYA [Suspect]
     Indication: MULTIPLE SCLEROSIS
     Dosage: 0.5 MG, DAILY
     Route: 048
     Dates: start: 20110617, end: 20110617
  9. FENTANYL [Concomitant]
     Indication: PAIN
     Dosage: 25 UG, Q72H
     Route: 062

REACTIONS (18)
  - FOLLICULITIS [None]
  - HYPERHIDROSIS [None]
  - RASH ERYTHEMATOUS [None]
  - PALLOR [None]
  - PRURITUS [None]
  - PAIN [None]
  - NERVOUS SYSTEM DISORDER [None]
  - HYPOTENSION [None]
  - ERYTHEMA [None]
  - SINUS BRADYCARDIA [None]
  - ELECTROCARDIOGRAM QT PROLONGED [None]
  - FAECAL INCONTINENCE [None]
  - FATIGUE [None]
  - HYPOAESTHESIA [None]
  - RASH [None]
  - CHEST PAIN [None]
  - MUSCULAR WEAKNESS [None]
  - WEIGHT DECREASED [None]
